FAERS Safety Report 15466048 (Version 1)
Quarter: 2018Q4

REPORT INFORMATION
  Report Type: Spontaneous
  Country: US (occurrence: US)
  Receive Date: 20181004
  Receipt Date: 20181004
  Transmission Date: 20190204
  Serious: No
  Sender: FDA-Public Use
  Company Number: US-GALDERMA-US17012625

PATIENT
  Age: 49 Year
  Sex: Female

DRUGS (1)
  1. MIRVASO [Suspect]
     Active Substance: BRIMONIDINE TARTRATE
     Indication: ROSACEA
     Dosage: 0.33%
     Route: 061
     Dates: start: 20171117, end: 20171117

REACTIONS (7)
  - Feeling hot [Recovered/Resolved]
  - Rosacea [Recovered/Resolved]
  - Flushing [Recovered/Resolved]
  - Pain of skin [Recovered/Resolved]
  - Dermatitis [Recovered/Resolved]
  - Drug ineffective [Recovered/Resolved]
  - Skin burning sensation [Recovered/Resolved]

NARRATIVE: CASE EVENT DATE: 20171117
